FAERS Safety Report 23744888 (Version 1)
Quarter: 2024Q2

REPORT INFORMATION
  Report Type: Spontaneous
  Country: PH (occurrence: PH)
  Receive Date: 20240415
  Receipt Date: 20240415
  Transmission Date: 20240715
  Serious: Yes (Life-Threatening, Hospitalization)
  Sender: FDA-Public Use
  Company Number: PH-STRIDES ARCOLAB LIMITED-2024SP004287

PATIENT
  Age: 38 Year
  Sex: Female

DRUGS (4)
  1. LETROZOLE [Suspect]
     Active Substance: LETROZOLE
     Indication: Assisted fertilisation
     Dosage: 2.5 MILLIGRAM
     Route: 065
  2. LETROZOLE [Suspect]
     Active Substance: LETROZOLE
     Indication: In vitro fertilisation
  3. CETRORELIX [Suspect]
     Active Substance: CETRORELIX
     Indication: Assisted fertilisation
     Dosage: 0.25 MILLIGRAM
     Route: 065
  4. CETRORELIX [Suspect]
     Active Substance: CETRORELIX
     Indication: In vitro fertilisation

REACTIONS (3)
  - Ovarian hyperstimulation syndrome [Recovered/Resolved]
  - Acute kidney injury [Recovered/Resolved]
  - Off label use [Unknown]
